FAERS Safety Report 5730679-3 (Version None)
Quarter: 2008Q2

REPORT INFORMATION
  Report Type: 
  Country: None (occurrence: None)
  Receive Date: 20080505
  Receipt Date: 20080505
  Transmission Date: 20081010
  Serious: Yes (Life-Threatening, Other)
  Sender: FDA-Public Use
  Company Number: None

PATIENT
  Age: 59 Year
  Sex: Male
  Weight: 89.9483 kg

DRUGS (9)
  1. PROPOFOL [Suspect]
     Indication: ANAESTHESIA PROCEDURE
     Dosage: IV
     Route: 042
     Dates: start: 20080213, end: 20080213
  2. LEVAQUIN [Suspect]
     Indication: PNEUMONIA
     Dosage: 500MG 1 TAB DAILY PO
     Route: 048
     Dates: start: 20080211, end: 20080211
  3. BENADRYL [Concomitant]
  4. LEVAQUIN [Concomitant]
  5. CARDIOVERSION [Concomitant]
  6. PROPOFOL [Concomitant]
  7. ASPIRIN [Concomitant]
  8. LISINOPRIL [Concomitant]
  9. CAPTOPRIL [Concomitant]

REACTIONS (2)
  - ERYTHEMA [None]
  - RASH PRURITIC [None]
